FAERS Safety Report 14527981 (Version 3)
Quarter: 2018Q1

REPORT INFORMATION
  Report Type: Spontaneous
  Country: JP (occurrence: JP)
  Receive Date: 20180213
  Receipt Date: 20180326
  Transmission Date: 20180509
  Serious: No
  Sender: FDA-Public Use
  Company Number: JP-BIOVERATIV-2017BV000474

PATIENT
  Age: 4 Decade
  Sex: Male
  Weight: 41 kg

DRUGS (6)
  1. ALPROLIX [Suspect]
     Active Substance: EFTRENONACOG ALFA
     Indication: FACTOR IX DEFICIENCY
     Dosage: ROUTINE TREATMENT
     Route: 042
  2. NOVACT [Concomitant]
     Route: 042
  3. ALPROLIX [Suspect]
     Active Substance: EFTRENONACOG ALFA
     Dosage: ADDITIONAL DOSE
     Route: 042
  4. ALPROLIX [Suspect]
     Active Substance: EFTRENONACOG ALFA
     Dosage: ROUTINE TREATMENT
     Route: 042
  5. NOVACT [Concomitant]
     Indication: FACTOR IX DEFICIENCY
     Dosage: 40-50 U/KG, ON-DEMAND
     Route: 042
  6. NOVACT [Concomitant]
     Dosage: 50U/KG
     Route: 042

REACTIONS (1)
  - Muscle haemorrhage [Recovered/Resolved]
